FAERS Safety Report 14883800 (Version 2)
Quarter: 2018Q2

REPORT INFORMATION
  Report Type: Spontaneous
  Country: US (occurrence: US)
  Receive Date: 20180511
  Receipt Date: 20180602
  Transmission Date: 20180711
  Serious: No
  Sender: FDA-Public Use
  Company Number: US-TEVA-2018-US-891467

PATIENT
  Sex: Female

DRUGS (2)
  1. CETIRIZINE W/PSEUDOEPHEDRINE [Suspect]
     Active Substance: CETIRIZINE HYDROCHLORIDE\PSEUDOEPHEDRINE HYDROCHLORIDE
     Indication: SEASONAL ALLERGY
     Dosage: 1 DOSAGE FORMS DAILY; 1DF=CETIRIZINE HYDROCHLORIDE 5 MG/PSEUDOEPHEDRINE HYDROCHLORIDE 120 MG
     Route: 048
     Dates: end: 20180502
  2. CETIRIZINE W/PSEUDOEPHEDRINE [Suspect]
     Active Substance: CETIRIZINE HYDROCHLORIDE\PSEUDOEPHEDRINE HYDROCHLORIDE
     Dosage: 1 DOSAGE FORMS DAILY; 1DF=CETIRIZINE HYDROCHLORIDE 5 MG/PSEUDOEPHEDRINE HYDROCHLORIDE 120 MG
     Route: 048
     Dates: end: 20180503

REACTIONS (2)
  - Drug effect decreased [Unknown]
  - Expired product administered [Unknown]

NARRATIVE: CASE EVENT DATE: 20180502
